FAERS Safety Report 9399111 (Version 1)
Quarter: 2013Q3

REPORT INFORMATION
  Report Type: Spontaneous
  Country: US (occurrence: US)
  Receive Date: 20130715
  Receipt Date: 20130715
  Transmission Date: 20140515
  Serious: No
  Sender: FDA-Public Use
  Company Number: US-B.I. PHARMACEUTICALS,INC./RIDGEFIELD-2013-BI-20217BP

PATIENT
  Age: 67 Year
  Sex: Male
  Weight: 130 kg

DRUGS (14)
  1. SPIRIVA [Suspect]
     Indication: CHRONIC OBSTRUCTIVE PULMONARY DISEASE
     Dosage: 18 MG
     Route: 055
     Dates: start: 201302
  2. ALBUTEROL [Concomitant]
     Indication: INHALATION THERAPY
     Route: 055
     Dates: start: 201302
  3. ATORVASTATIN [Concomitant]
     Indication: BLOOD CHOLESTEROL INCREASED
     Dosage: 40 MG
     Route: 048
     Dates: start: 2008
  4. CLOPIDOGREL [Concomitant]
     Indication: ANTICOAGULANT THERAPY
     Dosage: 75 MG
     Route: 048
     Dates: start: 2012
  5. DIAZEPAM [Concomitant]
     Indication: MUSCLE RELAXANT THERAPY
     Route: 048
     Dates: start: 1970
  6. SINUSOOTHE NASAL SPRAY [Concomitant]
     Indication: NASAL CONGESTION
     Dosage: (NASAL SPRAY) STRENGTH: 2 SPRAYS EACH NOSTRIL; DAILY DOSE: 8 SPRAYS
     Route: 045
     Dates: start: 2010
  7. GABAPENTIN [Concomitant]
     Indication: PAIN
     Dosage: 800 MG
     Route: 048
     Dates: start: 2012
  8. IBUPROFEN [Concomitant]
     Indication: PAIN
     Dosage: 1600 MG
     Route: 048
     Dates: start: 2012
  9. OXYCODONE [Concomitant]
     Indication: PAIN
     Route: 048
     Dates: start: 2012
  10. LISINOPRIL [Concomitant]
     Indication: HYPERTENSION
     Dosage: 5 MG
     Route: 048
     Dates: start: 2009
  11. METHYLCARBOMOL [Concomitant]
     Indication: MYALGIA
     Dosage: 1500 MG
     Route: 048
     Dates: start: 2012
  12. METOPROLOL [Concomitant]
     Indication: CARDIAC FAILURE CONGESTIVE
     Dosage: 100 MG
     Route: 048
     Dates: start: 2010
  13. RANITIDINE [Concomitant]
     Indication: ABDOMINAL DISCOMFORT
     Dosage: 300 MG
     Route: 048
     Dates: start: 2008
  14. SPIRONOLACTONE [Concomitant]
     Indication: DIURETIC THERAPY
     Dosage: 25 MG
     Route: 048
     Dates: start: 2009

REACTIONS (3)
  - Dyspnoea [Unknown]
  - Product quality issue [Unknown]
  - Product quality issue [Unknown]
